FAERS Safety Report 4782385-X (Version None)
Quarter: 2005Q3

REPORT INFORMATION
  Report Type: 
  Country: None (occurrence: None)
  Receive Date: 20050929
  Receipt Date: 20050705
  Transmission Date: 20060218
  Serious: No
  Sender: FDA-Public Use
  Company Number: JP-JNJFOC-20050607637

PATIENT
  Age: 32 Year
  Sex: Female

DRUGS (2)
  1. ITRIZOLE [Suspect]
     Indication: ONYCHOMYCOSIS
     Route: 048
     Dates: start: 20050624
  2. LANOCONAZOLE [Concomitant]
     Route: 061
     Dates: start: 20050624

REACTIONS (1)
  - DERMATITIS EXFOLIATIVE [None]
